FAERS Safety Report 7576757-8 (Version None)
Quarter: 2011Q2

REPORT INFORMATION
  Report Type: 
  Country: None (occurrence: None)
  Receive Date: 20110628
  Receipt Date: 20110112
  Transmission Date: 20111010
  Serious: Yes (Hospitalization, Other)
  Sender: FDA-Public Use
  Company Number: US-BAYER-201038794NA

PATIENT
  Age: 46 Year
  Sex: Female
  Weight: 61.224 kg

DRUGS (5)
  1. YASMIN [Suspect]
     Indication: CONTRACEPTION
     Dosage: UNK
     Dates: start: 20061128, end: 20080510
  2. VITAMIN TAB [Concomitant]
  3. YAZ [Suspect]
     Indication: CONTRACEPTION
     Dates: start: 20061128
  4. DROSPIRENONE AND ETHINYL ESTRADIOL [Suspect]
     Indication: CONTRACEPTION
     Dosage: UNK
     Dates: start: 20090218
  5. ZOLOFT [Concomitant]
     Indication: STRESS

REACTIONS (7)
  - GALLBLADDER INJURY [None]
  - INJURY [None]
  - CHOLECYSTITIS ACUTE [None]
  - CHOLELITHIASIS [None]
  - PAIN [None]
  - EMOTIONAL DISTRESS [None]
  - SCAR [None]
